FAERS Safety Report 6413230-4 (Version None)
Quarter: 2009Q4

REPORT INFORMATION
  Report Type: 
  Country: None (occurrence: None)
  Receive Date: 20091022
  Receipt Date: 20091022
  Transmission Date: 20100525
  Serious: No
  Sender: FDA-Public Use
  Company Number: None

PATIENT
  Sex: Female
  Weight: 101.6057 kg

DRUGS (2)
  1. GEODON [Suspect]
     Indication: BIPOLAR II DISORDER
     Dosage: 40MG  ONE DYLY. 8/13-8/14
     Dates: start: 20090813, end: 20090817
  2. GEODON [Suspect]
     Dosage: 60 MG ONE DYLY 8/17
     Dates: start: 20090817

REACTIONS (4)
  - AGITATION [None]
  - CRYING [None]
  - PALPITATIONS [None]
  - PRODUCT QUALITY ISSUE [None]
